FAERS Safety Report 24680458 (Version 1)
Quarter: 2024Q4

REPORT INFORMATION
  Report Type: Report from Study
  Country: CO (occurrence: CO)
  Receive Date: 20241129
  Receipt Date: 20241129
  Transmission Date: 20250114
  Serious: Yes (Other)
  Sender: TAKEDA
  Company Number: CO-TAKEDA-2024TUS119059

PATIENT
  Sex: Male
  Weight: 62 kg

DRUGS (1)
  1. IXAZOMIB [Suspect]
     Active Substance: IXAZOMIB
     Indication: Plasma cell myeloma
     Dosage: 4 MILLIGRAM

REACTIONS (6)
  - Hallucination, visual [Unknown]
  - Disorientation [Unknown]
  - Amnesia [Unknown]
  - Insomnia [Unknown]
  - Aggression [Unknown]
  - Hypoacusis [Unknown]
